FAERS Safety Report 9745018 (Version 1)
Quarter: 2013Q4

REPORT INFORMATION
  Report Type: Spontaneous
  Country: CA (occurrence: CA)
  Receive Date: 20131211
  Receipt Date: 20131211
  Transmission Date: 20140711
  Serious: Yes (Other)
  Sender: FDA-Public Use
  Company Number: CA-AMGEN-CANSP2013086377

PATIENT
  Age: 73 Year
  Sex: Male

DRUGS (14)
  1. ENBREL [Suspect]
     Indication: PRODUCT USED FOR UNKNOWN INDICATION
     Dosage: UNK
     Route: 058
  2. METHOTREXATE [Suspect]
     Indication: PRODUCT USED FOR UNKNOWN INDICATION
     Dosage: UNK
     Route: 065
  3. ASA [Concomitant]
     Dosage: UNK
  4. CALCIUM [Concomitant]
     Dosage: UNK
  5. CHONDROITIN [Concomitant]
     Dosage: UNK
  6. COZAAR [Concomitant]
     Dosage: UNK
  7. ERGOCALCIFEROL [Concomitant]
     Dosage: UNK
  8. FOLIC ACID [Concomitant]
     Dosage: UNK
  9. GLUCOSAMINE [Concomitant]
     Dosage: UNK
  10. INDAPAMIDE [Concomitant]
     Dosage: UNK
  11. LANTUS [Concomitant]
     Dosage: UNK
     Route: 058
  12. LIPITOR [Concomitant]
     Dosage: UNK
  13. PLAVIX [Concomitant]
     Dosage: UNK
  14. TYLENOL                            /00020001/ [Concomitant]
     Dosage: UNK

REACTIONS (3)
  - Hepatic enzyme increased [Unknown]
  - Influenza [Unknown]
  - Viral infection [Unknown]
